FAERS Safety Report 13387908 (Version 1)
Quarter: 2017Q1

REPORT INFORMATION
  Report Type: Report from Study
  Country: CA (occurrence: CA)
  Receive Date: 20170330
  Receipt Date: 20170330
  Transmission Date: 20170429
  Serious: Yes (Other)
  Sender: FDA-Public Use
  Company Number: CA-BIOGEN-2017BI00379483

PATIENT
  Age: 59 Year
  Sex: Female

DRUGS (5)
  1. TECFIDERA [Suspect]
     Active Substance: DIMETHYL FUMARATE
     Dosage: STARTING DOSE PER MD ORDER 240MG AM, 120MG PM
     Route: 048
     Dates: start: 20170125, end: 20170131
  2. TECFIDERA [Suspect]
     Active Substance: DIMETHYL FUMARATE
     Indication: MULTIPLE SCLEROSIS
     Dosage: STARTING DOSE PER MD ORDER 120MG QD FOR 1 WEEK
     Route: 048
     Dates: start: 20170111, end: 20170117
  3. TECFIDERA [Suspect]
     Active Substance: DIMETHYL FUMARATE
     Dosage: STARTING DOSE PER MD ORDER 120MG BID FOR 1 WEEK
     Route: 048
     Dates: start: 20170118, end: 20170124
  4. TECFIDERA [Suspect]
     Active Substance: DIMETHYL FUMARATE
     Dosage: MAINTENANCE DOSE
     Route: 048
     Dates: start: 20170201
  5. TECFIDERA [Suspect]
     Active Substance: DIMETHYL FUMARATE
     Dosage: STARTING DOSE PER MD ORDER 240MG AM, 120MG PM
     Route: 048
     Dates: start: 20170125, end: 20170131

REACTIONS (3)
  - Blindness [Unknown]
  - Hypoaesthesia [Unknown]
  - Prescribed underdose [Recovered/Resolved]

NARRATIVE: CASE EVENT DATE: 2017
